FAERS Safety Report 22350906 (Version 6)
Quarter: 2024Q3

REPORT INFORMATION
  Report Type: Spontaneous
  Country: GB (occurrence: GB)
  Receive Date: 20230522
  Receipt Date: 20240814
  Transmission Date: 20241016
  Serious: Yes (Hospitalization)
  Sender: MYLAN
  Company Number: GB-MYLANLABS-2023M1051988

PATIENT
  Sex: Female

DRUGS (3)
  1. CLOZARIL [Suspect]
     Active Substance: CLOZAPINE
     Indication: Schizophrenia
     Dosage: UNK
     Route: 048
     Dates: start: 20220824
  2. CLOZARIL [Suspect]
     Active Substance: CLOZAPINE
     Indication: Frontotemporal dementia
     Dosage: UNK
     Route: 048
     Dates: start: 20240221
  3. CLOZARIL [Suspect]
     Active Substance: CLOZAPINE
     Indication: Neuropsychological symptoms
     Dosage: UNK
     Route: 048
     Dates: start: 20240412

REACTIONS (5)
  - Dyspnoea [Unknown]
  - Psychotic disorder [Unknown]
  - Malaise [Unknown]
  - Off label use [Unknown]
  - Treatment noncompliance [Unknown]
